FAERS Safety Report 22380843 (Version 3)
Quarter: 2023Q2

REPORT INFORMATION
  Report Type: Report from Study
  Country: US (occurrence: US)
  Receive Date: 20230530
  Receipt Date: 20230605
  Transmission Date: 20230722
  Serious: No
  Sender: FDA-Public Use
  Company Number: US-002147023-NVSC2023US119120

PATIENT
  Sex: Female

DRUGS (2)
  1. BETAMETHASONE [Suspect]
     Active Substance: BETAMETHASONE
     Indication: Psoriasis
     Dosage: UNK
     Route: 065
  2. TACROLIMUS [Suspect]
     Active Substance: TACROLIMUS
     Indication: Psoriasis
     Dosage: UNK
     Route: 065

REACTIONS (8)
  - Temperature intolerance [Unknown]
  - Psoriasis [Unknown]
  - Dermatitis [Unknown]
  - Skin fissures [Unknown]
  - Rash erythematous [Unknown]
  - Pruritus [Unknown]
  - Treatment failure [Unknown]
  - Product use in unapproved indication [Unknown]
